FAERS Safety Report 19954870 (Version 5)
Quarter: 2022Q3

REPORT INFORMATION
  Report Type: Report from Study
  Country: FI (occurrence: FI)
  Receive Date: 20211013
  Receipt Date: 20220905
  Transmission Date: 20221027
  Serious: Yes (Other)
  Sender: FDA-Public Use
  Company Number: FI-TEVA-2021-FI-1954021

PATIENT
  Age: 43 Year
  Sex: Female
  Weight: 64 kg

DRUGS (9)
  1. AJOVY [Suspect]
     Active Substance: FREMANEZUMAB-VFRM
     Indication: Product used for unknown indication
     Dosage: PREFILLED SYRINGE,
     Route: 058
     Dates: start: 20210607, end: 20210706
  2. AJOVY [Suspect]
     Active Substance: FREMANEZUMAB-VFRM
     Dosage: AUTOINJECTOR (SOLUTION FOR INJECTION IN PRE-FILLED PEN), LAST INJECTION PRIOR TO AE: 07-JUN-2021
     Route: 065
     Dates: start: 20210804
  3. ALBUTEROL SULFATE [Concomitant]
     Active Substance: ALBUTEROL SULFATE
     Indication: Asthma
     Dosage: 400 MICROGRAM DAILY; BID, START DATE: 2020
     Route: 055
  4. BUDESONIDE [Concomitant]
     Active Substance: BUDESONIDE
     Indication: Asthma
     Dosage: PRN, START DATE: 2020
     Route: 055
  5. DYDROGESTERONE\ESTRADIOL [Concomitant]
     Active Substance: DYDROGESTERONE\ESTRADIOL
     Indication: Endometriosis
     Dosage: 1 DOSAGE FORMS DAILY; FEMOSTON 2/10, START DATE: 2020
     Route: 048
  6. ELETRIPTAN HYDROBROMIDE [Concomitant]
     Active Substance: ELETRIPTAN HYDROBROMIDE
     Indication: Migraine
     Dosage: PRN, START DATE: 2004
     Route: 048
  7. NAPROXEN [Concomitant]
     Active Substance: NAPROXEN
     Indication: Migraine
     Dosage: PRN, START DATE: 2004
     Route: 048
  8. TIZANIDINE [Concomitant]
     Active Substance: TIZANIDINE
     Indication: Migraine
     Dosage: PRN, START DATE: 2017
     Route: 048
  9. EMGALITY [Concomitant]
     Active Substance: GALCANEZUMAB-GNLM
     Indication: Migraine prophylaxis
     Dosage: QM, START DATE: 06-SEP-2021
     Route: 058

REACTIONS (7)
  - Drug hypersensitivity [Recovered/Resolved]
  - Injection site erythema [Recovered/Resolved]
  - Injection site warmth [Recovered/Resolved]
  - Tongue pruritus [Recovered/Resolved]
  - Injection site pruritus [Recovered/Resolved]
  - Oral pruritus [Recovered/Resolved]
  - Injection site hypersensitivity [Recovered/Resolved]

NARRATIVE: CASE EVENT DATE: 20210607
